FAERS Safety Report 25304560 (Version 1)
Quarter: 2025Q2

REPORT INFORMATION
  Report Type: Spontaneous
  Country: US (occurrence: US)
  Receive Date: 20250513
  Receipt Date: 20250513
  Transmission Date: 20250717
  Serious: Yes (Life-Threatening, Hospitalization, Other)
  Sender: ALEMBIC
  Company Number: US-MLMSERVICE-20250416-PI482097-00330-1

PATIENT

DRUGS (4)
  1. VENLAFAXINE [Suspect]
     Active Substance: VENLAFAXINE HYDROCHLORIDE
     Indication: Depression
     Route: 065
  2. VENLAFAXINE [Suspect]
     Active Substance: VENLAFAXINE HYDROCHLORIDE
     Indication: Anxiety
  3. PREGABALIN [Suspect]
     Active Substance: PREGABALIN
     Indication: Nerve compression
     Route: 065
  4. FENTANYL [Concomitant]
     Active Substance: FENTANYL
     Indication: Nerve compression
     Route: 065

REACTIONS (9)
  - Acute kidney injury [Recovering/Resolving]
  - Renal tubular necrosis [Recovering/Resolving]
  - Exertional rhabdomyolysis [Recovering/Resolving]
  - Encephalopathy [Recovering/Resolving]
  - Hepatic function abnormal [Recovering/Resolving]
  - Metabolic acidosis [Recovering/Resolving]
  - Pain [Recovering/Resolving]
  - Agitation [Recovering/Resolving]
  - Confusional state [None]
